FAERS Safety Report 9543821 (Version 1)
Quarter: 2013Q3

REPORT INFORMATION
  Report Type: Spontaneous
  Country: US (occurrence: US)
  Receive Date: 20130923
  Receipt Date: 20130923
  Transmission Date: 20140515
  Serious: No
  Sender: FDA-Public Use
  Company Number: US-BAYER-2013-114937

PATIENT
  Age: 62 Year
  Sex: Male
  Weight: 82 kg

DRUGS (1)
  1. ALEVE CAPLET [Suspect]
     Indication: TOOTHACHE
     Dosage: 2 DF, UNK
     Route: 048

REACTIONS (3)
  - Erythema [None]
  - Pruritus [None]
  - Expired drug administered [None]
